FAERS Safety Report 9649277 (Version 1)
Quarter: 2013Q4

REPORT INFORMATION
  Report Type: Spontaneous
  Country: GB (occurrence: GB)
  Receive Date: 20131028
  Receipt Date: 20131028
  Transmission Date: 20140711
  Serious: Yes (Life-Threatening, Hospitalization)
  Sender: FDA-Public Use
  Company Number: GB-GLAXOSMITHKLINE-B0932322A

PATIENT
  Age: 84 Year
  Sex: Female

DRUGS (11)
  1. ACICLOVIR [Suspect]
     Indication: HERPES ZOSTER
     Dosage: 1000MG PER DAY
     Route: 048
     Dates: start: 20130913, end: 20130916
  2. OMEPRAZOLE [Concomitant]
     Dosage: 20MG PER DAY
  3. PREDNISOLONE [Concomitant]
     Indication: POLYMYALGIA RHEUMATICA
     Dosage: 20MG PER DAY
  4. ASPIRIN [Concomitant]
     Dosage: 75MG PER DAY
  5. BISOPROLOL [Concomitant]
     Dosage: 5MG PER DAY
  6. CALCICHEW D3 [Concomitant]
     Dosage: 2IUAX PER DAY
  7. CINNARIZINE [Concomitant]
     Dosage: 45MG PER DAY
  8. EXEMESTANE [Concomitant]
     Dosage: 25MG PER DAY
  9. SIMVASTATIN [Concomitant]
     Dosage: 20MG PER DAY
  10. FERROUS FUMARATE [Concomitant]
     Dosage: 420MG PER DAY
  11. HYDROXOCOBALAMIN [Concomitant]

REACTIONS (3)
  - Treatment failure [Recovered/Resolved]
  - Herpes zoster [Unknown]
  - Condition aggravated [Unknown]
